FAERS Safety Report 23148448 (Version 1)
Quarter: 2023Q4

REPORT INFORMATION
  Report Type: Other
  Country: None (occurrence: US)
  Receive Date: 20231106
  Receipt Date: 20231106
  Transmission Date: 20240109
  Serious: No
  Sender: FDA-Public Use
  Company Number: US-Neogen Corporation-2147850

PATIENT

DRUGS (1)
  1. PYRANTEL PAMOATE [Suspect]
     Active Substance: PYRANTEL PAMOATE

REACTIONS (1)
  - Adverse event [None]
